FAERS Safety Report 9777370 (Version 1)
Quarter: 2013Q4

REPORT INFORMATION
  Report Type: Spontaneous
  Country: US (occurrence: US)
  Receive Date: 20131221
  Receipt Date: 20131221
  Transmission Date: 20140711
  Serious: Yes (Other)
  Sender: FDA-Public Use
  Company Number: PHHY2013US149960

PATIENT
  Age: 14 Year
  Sex: Female

DRUGS (4)
  1. TEGRETOL [Suspect]
     Indication: CONVULSION
     Dosage: UNK UKN, UNK
  2. TEGRETOL [Suspect]
     Dosage: DOSE REDUCED
  3. RISPERIDONE [Suspect]
     Dosage: 6 MG, UNK
  4. RISPERIDONE [Suspect]
     Dosage: CROSS TAPERED TO FANAPT

REACTIONS (2)
  - Extrapyramidal disorder [Unknown]
  - Tardive dyskinesia [Unknown]
